FAERS Safety Report 4370231-8 (Version None)
Quarter: 2004Q2

REPORT INFORMATION
  Report Type: 
  Country: None (occurrence: None)
  Receive Date: 20040603
  Receipt Date: 20040319
  Transmission Date: 20050107
  Serious: No
  Sender: FDA-Public Use
  Company Number: US-BRISTOL-MYERS SQUIBB COMPANY-12538492

PATIENT
  Age: 47 Year
  Sex: Male
  Weight: 113 kg

DRUGS (3)
  1. ABILIFY [Suspect]
     Route: 048
  2. BACTRIM [Concomitant]
     Indication: SKIN ULCER
  3. CLINDAMYCIN HCL [Concomitant]
     Indication: SKIN ULCER

REACTIONS (1)
  - BLOOD CREATININE INCREASED [None]
